FAERS Safety Report 13242277 (Version 1)
Quarter: 2017Q1

REPORT INFORMATION
  Report Type: Spontaneous
  Country: CH (occurrence: CH)
  Receive Date: 20170216
  Receipt Date: 20170216
  Transmission Date: 20170428
  Serious: Yes (Other)
  Sender: FDA-Public Use
  Company Number: CH-TEVA-739432ISR

PATIENT
  Sex: Female

DRUGS (2)
  1. DUMOZOL [Suspect]
     Active Substance: METRONIDAZOLE
     Route: 048
  2. DUMOZOL [Suspect]
     Active Substance: METRONIDAZOLE
     Route: 042

REACTIONS (3)
  - Generalised erythema [Unknown]
  - Urticaria [Unknown]
  - Anaphylactic reaction [Unknown]
